FAERS Safety Report 25120396 (Version 4)
Quarter: 2025Q2

REPORT INFORMATION
  Report Type: Spontaneous
  Country: DE (occurrence: DE)
  Receive Date: 20250325
  Receipt Date: 20250516
  Transmission Date: 20250717
  Serious: Yes (Life-Threatening, Hospitalization)
  Sender: INTERCHEM
  Company Number: DE-HQ SPECIALTY-DE-2025INT000021

PATIENT
  Age: 74 Year
  Sex: Female

DRUGS (12)
  1. DEXMEDETOMIDINE HYDROCHLORIDE [Suspect]
     Active Substance: DEXMEDETOMIDINE HYDROCHLORIDE
     Indication: Sedation
     Route: 042
  2. BROMAZEPAM [Suspect]
     Active Substance: BROMAZEPAM
     Indication: Product used for unknown indication
     Route: 048
  3. RAMIPRIL [Suspect]
     Active Substance: RAMIPRIL
     Indication: Product used for unknown indication
     Route: 048
  4. TORSEMIDE [Suspect]
     Active Substance: TORSEMIDE
     Indication: Product used for unknown indication
     Route: 048
  5. ROPIVACAINE [Concomitant]
     Active Substance: ROPIVACAINE
     Indication: Spinal anaesthesia
     Route: 065
  6. CLONIDINE [Concomitant]
     Active Substance: CLONIDINE
     Indication: Spinal anaesthesia
     Route: 065
  7. SUFENTANIL [Concomitant]
     Active Substance: SUFENTANIL
     Indication: Analgesic therapy
     Dosage: 5 MICROGRAM, BID
     Route: 042
  8. GABAPENTIN [Concomitant]
     Active Substance: GABAPENTIN
     Indication: Product used for unknown indication
     Dosage: 600 MG, Q8H
     Route: 048
  9. ALLOPURINOL [Concomitant]
     Active Substance: ALLOPURINOL
     Indication: Product used for unknown indication
     Route: 048
  10. LEVOTHYROXINE [Concomitant]
     Active Substance: LEVOTHYROXINE
     Indication: Product used for unknown indication
     Route: 048
  11. BISOPROLOL [Concomitant]
     Active Substance: BISOPROLOL
     Indication: Product used for unknown indication
     Route: 048
  12. FLUTICASONE PROPIONATE\SALMETEROL XINAFOATE [Concomitant]
     Active Substance: FLUTICASONE PROPIONATE\SALMETEROL XINAFOATE
     Indication: Product used for unknown indication
     Route: 055

REACTIONS (6)
  - Drug interaction [Recovered/Resolved]
  - Hypercapnic coma [Recovered/Resolved]
  - Neurological decompensation [Recovered/Resolved]
  - Toxicity to various agents [Recovered/Resolved]
  - Respiratory acidosis [Recovered/Resolved]
  - Acute kidney injury [Recovered/Resolved]
